FAERS Safety Report 6180272-6 (Version None)
Quarter: 2009Q2

REPORT INFORMATION
  Report Type: 
  Country: None (occurrence: None)
  Receive Date: 20090501
  Receipt Date: 20090415
  Transmission Date: 20091009
  Serious: Yes (Life-Threatening, Hospitalization, Other)
  Sender: FDA-Public Use
  Company Number: IPS_01597_2009

PATIENT
  Sex: Male

DRUGS (5)
  1. APOMORPHINE HYDROCHLORIDE (APOMORPHINE HYDROCHLORIDE) [Suspect]
     Indication: PARKINSON'S DISEASE
     Dosage: 2.5 MG,  SUBCUTANEOUS
     Route: 058
     Dates: start: 20071101, end: 20081218
  2. STAVELO [Concomitant]
  3. SINEMET CR [Concomitant]
  4. DOMPERIDONE [Concomitant]
  5. CABASER [Concomitant]

REACTIONS (8)
  - CARDIAC FAILURE CONGESTIVE [None]
  - CONFUSIONAL STATE [None]
  - COOMBS POSITIVE HAEMOLYTIC ANAEMIA [None]
  - HEPATOMEGALY [None]
  - INCORRECT ROUTE OF DRUG ADMINISTRATION [None]
  - JAUNDICE [None]
  - LETHARGY [None]
  - LEUKOERYTHROBLASTIC ANAEMIA [None]
